FAERS Safety Report 24255156 (Version 2)
Quarter: 2024Q3

REPORT INFORMATION
  Report Type: Spontaneous
  Country: DE (occurrence: DE)
  Receive Date: 20240827
  Receipt Date: 20240830
  Transmission Date: 20241016
  Serious: Yes (Death, Life-Threatening, Hospitalization, Other)
  Sender: GILEAD
  Company Number: None

PATIENT
  Age: 75 Year
  Sex: Male

DRUGS (2)
  1. YESCARTA [Suspect]
     Active Substance: AXICABTAGENE CILOLEUCEL
     Indication: High grade B-cell lymphoma Burkitt-like lymphoma refractory
     Dosage: 1 DOSAGE FORM
     Route: 065
     Dates: start: 20221019
  2. REMDESIVIR [Concomitant]
     Active Substance: REMDESIVIR

REACTIONS (4)
  - Infection [Fatal]
  - Chronic obstructive pulmonary disease [Fatal]
  - Acute respiratory distress syndrome [Fatal]
  - COVID-19 [Fatal]

NARRATIVE: CASE EVENT DATE: 20221113
